FAERS Safety Report 22031305 (Version 1)
Quarter: 2023Q1

REPORT INFORMATION
  Report Type: Report from Study
  Country: US (occurrence: US)
  Receive Date: 20230223
  Receipt Date: 20230223
  Transmission Date: 20230418
  Serious: Yes (Other)
  Sender: FDA-Public Use
  Company Number: US-AUROBINDO-AUR-APL-2023-008052

PATIENT
  Age: 41 Year
  Sex: Female

DRUGS (6)
  1. CYCLOPHOSPHAMIDE [Suspect]
     Active Substance: CYCLOPHOSPHAMIDE
     Indication: Thyroid cancer
     Dosage: UNK(SIX CYCLES OF EPOCH-R)
     Route: 065
  2. PREDNISONE [Suspect]
     Active Substance: PREDNISONE
     Indication: Thyroid cancer
     Dosage: UNK(SIX CYCLES OF EPOCH-R)
     Route: 065
  3. VINCRISTINE [Suspect]
     Active Substance: VINCRISTINE
     Indication: Thyroid cancer
     Dosage: UNK( SIX CYCLES OF EPOCH-R)
     Route: 065
  4. DOXORUBICIN [Suspect]
     Active Substance: DOXORUBICIN
     Indication: Thyroid cancer
     Dosage: UNK(SIX CYCLES OF EPOCH-R)
     Route: 065
  5. ETOPOSIDE [Suspect]
     Active Substance: ETOPOSIDE
     Indication: Thyroid cancer
     Dosage: UNK(SIX CYCLES OF EPOCH-R)
     Route: 065
  6. RITUXIMAB [Suspect]
     Active Substance: RITUXIMAB
     Indication: Thyroid cancer
     Dosage: UNK(SIX CYCLES OF EPOCH-R)
     Route: 065

REACTIONS (2)
  - Duodenal perforation [Unknown]
  - Gastroenterostomy [Unknown]
